FAERS Safety Report 10441220 (Version 1)
Quarter: 2014Q3

REPORT INFORMATION
  Report Type: Spontaneous
  Country: US (occurrence: None)
  Receive Date: 20140908
  Receipt Date: 20140908
  Transmission Date: 20150326
  Serious: Yes (Other)
  Sender: FDA-Public Use
  Company Number: None

PATIENT
  Age: 75 Year
  Sex: Female
  Weight: 63.5 kg

DRUGS (10)
  1. AMLODINE [Concomitant]
     Active Substance: AMLODIPINE BESYLATE
  2. ESTRADIOL. [Concomitant]
     Active Substance: ESTRADIOL
  3. SPRING VALLEY DAILY PROBIOTIC DIGESTIVE HEALTH SPRING VALLEY [Suspect]
     Active Substance: PROBIOTICS NOS
     Indication: ROUTINE HEALTH MAINTENANCE
     Dosage: NOT KNOWN?1 DAILY?1 DAILY?BY MOUTH
     Route: 048
     Dates: start: 201407
  4. ASPIRIN. [Concomitant]
     Active Substance: ASPIRIN
  5. LEVOTHYROXIN [Concomitant]
     Active Substance: LEVOTHYROXINE
  6. ENALAPRIL [Concomitant]
     Active Substance: ENALAPRIL
  7. AZOPT [Concomitant]
     Active Substance: BRINZOLAMIDE
  8. SIMVASTATIN. [Concomitant]
     Active Substance: SIMVASTATIN
  9. LUMIGAN [Concomitant]
     Active Substance: BIMATOPROST
  10. CALCIUM [Concomitant]
     Active Substance: CALCIUM

REACTIONS (6)
  - Rash generalised [None]
  - Chest pain [None]
  - Insomnia [None]
  - Pain in extremity [None]
  - Dyspnoea [None]
  - Unevaluable event [None]

NARRATIVE: CASE EVENT DATE: 201408
